FAERS Safety Report 6611498-2 (Version None)
Quarter: 2010Q1

REPORT INFORMATION
  Report Type: 
  Country: None (occurrence: None)
  Receive Date: 20100303
  Receipt Date: 20100218
  Transmission Date: 20100710
  Serious: Yes (Other)
  Sender: FDA-Public Use
  Company Number: PHHY2010US10264

PATIENT
  Sex: Female
  Weight: 62.47 kg

DRUGS (2)
  1. RECLAST [Suspect]
     Dosage: UNK
  2. RECLAST [Suspect]
     Dosage: UNK

REACTIONS (2)
  - ORAL SURGERY [None]
  - OSTEONECROSIS [None]
